FAERS Safety Report 4921184-2 (Version None)
Quarter: 2006Q1

REPORT INFORMATION
  Report Type: 
  Country: None (occurrence: None)
  Receive Date: 20060217
  Receipt Date: 20060130
  Transmission Date: 20060701
  Serious: Yes (Death, Hospitalization)
  Sender: FDA-Public Use
  Company Number: 2006-00215

PATIENT
  Age: 70 Year
  Sex: Male
  Weight: 66.2 kg

DRUGS (10)
  1. VELCADE [Suspect]
     Indication: MULTIPLE MYELOMA
     Dosage: INTRAVENOUS
     Route: 042
     Dates: start: 20040531, end: 20040730
  2. DILAUDID [Concomitant]
  3. SENOKOT-S (DOCUSATE SODIUM, SENNA) [Concomitant]
  4. COLACE (DOCUSATE SODIUM) [Concomitant]
  5. FOLIC ACID [Concomitant]
  6. HYDROMORPH CONTIN (HYDROMORPHONE HYDROCHLORIDE) [Concomitant]
  7. SYNTHROID [Concomitant]
  8. MAGNESIUM OXIDE (MAGNESIUM OXIDE) [Concomitant]
  9. LASIX [Concomitant]
  10. VALTREX [Concomitant]

REACTIONS (19)
  - ABDOMINAL ADHESIONS [None]
  - ADHESION [None]
  - CARDIOMEGALY [None]
  - COLITIS [None]
  - FEBRILE NEUTROPENIA [None]
  - FUNGAL INFECTION [None]
  - HEPATIC FAILURE [None]
  - INTESTINAL INFARCTION [None]
  - INTESTINAL OBSTRUCTION [None]
  - INTESTINAL PERFORATION [None]
  - NEPHROTIC SYNDROME [None]
  - OEDEMA PERIPHERAL [None]
  - PANCYTOPENIA [None]
  - PERICARDIAL DISEASE [None]
  - PERITONEAL DISORDER [None]
  - PERITONITIS [None]
  - PLEURAL ADHESION [None]
  - SEPTIC SHOCK [None]
  - SPLENOMEGALY [None]
